FAERS Safety Report 16866630 (Version 1)
Quarter: 2019Q3

REPORT INFORMATION
  Report Type: Spontaneous
  Country: CA (occurrence: CA)
  Receive Date: 20190930
  Receipt Date: 20190930
  Transmission Date: 20191005
  Serious: Yes (Other)
  Sender: FDA-Public Use
  Company Number: CA-SAMSUNG BIOEPIS-SB-2019-28312

PATIENT
  Age: 54 Year
  Sex: Female
  Weight: 73.6 kg

DRUGS (1)
  1. RENFLEXIS [Suspect]
     Active Substance: INFLIXIMAB-ABDA
     Indication: CROHN^S DISEASE
     Route: 042
     Dates: start: 20190904

REACTIONS (2)
  - Crohn^s disease [Unknown]
  - Fall [Unknown]

NARRATIVE: CASE EVENT DATE: 20190915
